FAERS Safety Report 7467270-7 (Version None)
Quarter: 2011Q2

REPORT INFORMATION
  Report Type: 
  Country: None (occurrence: None)
  Receive Date: 20110509
  Receipt Date: 20101123
  Transmission Date: 20111010
  Serious: No
  Sender: FDA-Public Use
  Company Number: US-ALEXION-A201001523

PATIENT
  Sex: Female

DRUGS (7)
  1. FOCUS FACTOR [Concomitant]
     Dosage: UNK
     Route: 048
  2. TRI-EST [Concomitant]
     Indication: HORMONE REPLACEMENT THERAPY
     Dosage: 50 MG, QD
     Route: 048
  3. OTC MOTION SICKNESS MEDICATION [Concomitant]
     Indication: MOTION SICKNESS
     Dosage: UNK
     Route: 048
  4. SOLIRIS [Suspect]
     Dosage: 900 MG, Q2W
     Route: 042
     Dates: start: 20100604
  5. SOLIRIS [Suspect]
     Indication: PAROXYSMAL NOCTURNAL HAEMOGLOBINURIA
     Dosage: 600 MG, QWX4
     Route: 042
     Dates: start: 20100506, end: 20100101
  6. FOSTEUM [Concomitant]
     Dosage: UNK
     Route: 048
  7. ASPIRIN [Concomitant]
     Dosage: 81 MG, QD
     Route: 048

REACTIONS (4)
  - EAR DISORDER [None]
  - HEADACHE [None]
  - VERTIGO [None]
  - VIRAL INFECTION [None]
